FAERS Safety Report 19884954 (Version 1)
Quarter: 2021Q3

REPORT INFORMATION
  Report Type: Spontaneous
  Country: US (occurrence: US)
  Receive Date: 20210927
  Receipt Date: 20210927
  Transmission Date: 20211014
  Serious: Yes (Hospitalization)
  Sender: FDA-Public Use
  Company Number: None

PATIENT
  Age: 71 Year
  Sex: Male
  Weight: 104.3 kg

DRUGS (1)
  1. REGEN?COV [Suspect]
     Active Substance: CASIRIVIMAB\IMDEVIMAB
     Indication: COVID-19
     Dosage: ?          OTHER FREQUENCY:ONCE;?
     Route: 058
     Dates: start: 20210920, end: 20210920

REACTIONS (7)
  - Pain [None]
  - Oxygen saturation decreased [None]
  - Acute respiratory failure [None]
  - Pyrexia [None]
  - Cough [None]
  - Tremor [None]
  - Hypoxia [None]

NARRATIVE: CASE EVENT DATE: 20210921
